FAERS Safety Report 4417859-4 (Version None)
Quarter: 2004Q3

REPORT INFORMATION
  Report Type: 
  Country: None (occurrence: None)
  Receive Date: 20040803
  Receipt Date: 20040728
  Transmission Date: 20050211
  Serious: Yes (Hospitalization)
  Sender: FDA-Public Use
  Company Number: 2004PK01264

PATIENT
  Age: 59 Year
  Sex: Female
  Weight: 75 kg

DRUGS (6)
  1. ARIMIDEX [Suspect]
     Indication: BREAST CANCER
     Dosage: 1 MG DAILY PO
     Route: 048
     Dates: start: 20020109
  2. BLOPRESS [Concomitant]
  3. SELOKEN [Concomitant]
  4. DEANXIT [Concomitant]
  5. L-THYROXIN [Concomitant]
  6. AERIUS [Concomitant]

REACTIONS (3)
  - ENDOMETRIAL HYPERPLASIA [None]
  - OVARIAN CYST [None]
  - UTERINE POLYP [None]
